FAERS Safety Report 15672799 (Version 1)
Quarter: 2018Q4

REPORT INFORMATION
  Report Type: Spontaneous
  Country: US (occurrence: US)
  Receive Date: 20181129
  Receipt Date: 20181129
  Transmission Date: 20190205
  Serious: No
  Sender: FDA-Public Use
  Company Number: US-PFIZER INC-2018478889

PATIENT
  Age: 67 Year
  Sex: Male

DRUGS (1)
  1. PROCARDIA [Suspect]
     Active Substance: NIFEDIPINE
     Dosage: UNK

REACTIONS (2)
  - Headache [Unknown]
  - Drug hypersensitivity [Unknown]
